FAERS Safety Report 17275806 (Version 1)
Quarter: 2020Q1

REPORT INFORMATION
  Report Type: Spontaneous
  Country: GB (occurrence: GB)
  Receive Date: 20200116
  Receipt Date: 20200116
  Transmission Date: 20200409
  Serious: Yes (Other)
  Sender: FDA-Public Use
  Company Number: GB-ACCORD-169366

PATIENT
  Age: 73 Year
  Sex: Male
  Weight: 74.1 kg

DRUGS (2)
  1. MONOPOST [Concomitant]
     Active Substance: LATANOPROST
  2. ALLOPURINOL. [Suspect]
     Active Substance: ALLOPURINOL
     Indication: GOUT
     Route: 048
     Dates: start: 20190101, end: 20191219

REACTIONS (3)
  - Chest pain [Unknown]
  - Gynaecomastia [Unknown]
  - Swelling [Unknown]

NARRATIVE: CASE EVENT DATE: 20190918
